FAERS Safety Report 7501859-1 (Version None)
Quarter: 2011Q2

REPORT INFORMATION
  Report Type: 
  Country: None (occurrence: None)
  Receive Date: 20110525
  Receipt Date: 20110120
  Transmission Date: 20111010
  Serious: Yes (Other)
  Sender: FDA-Public Use
  Company Number: US-BAYER-201038253NA

PATIENT
  Age: 45 Year
  Sex: Female
  Weight: 74.83 kg

DRUGS (13)
  1. MOTRIN [Concomitant]
  2. LOTREL [Concomitant]
     Indication: HYPERTENSION
     Dosage: 10/20MG, QD
     Route: 048
  3. ATIVAN [Concomitant]
     Dosage: 0.5 MG, BID, PRN
  4. ATENOLOL [Concomitant]
     Indication: HYPERTENSION
     Dosage: DAILY DOSE 25 MG
  5. ALEVE (CAPLET) [Concomitant]
  6. ADVIL LIQUI-GELS [Concomitant]
  7. BENADRYL [Concomitant]
     Indication: MULTIPLE ALLERGIES
     Dosage: 2 DF, UNK
  8. HYDROCHLOROTHIAZIDE [Concomitant]
     Dosage: DAILY DOSE 25 MG
  9. TYLENOL W/ CODEINE NO. 3 [Concomitant]
  10. OVER THE COUNTER APPETITE SUPPRESSANT - SLIM QUICK [Concomitant]
  11. YAZ [Suspect]
     Dosage: UNK
     Dates: start: 20050101, end: 20060101
  12. DEPO-PROVERA [Concomitant]
     Indication: MENSTRUATION IRREGULAR
     Dosage: SHOT
  13. TOPROL-XL [Concomitant]
     Dosage: DAILY DOSE 100 MG
     Route: 048

REACTIONS (3)
  - CHOLELITHIASIS [None]
  - GALLBLADDER DISORDER [None]
  - CHOLECYSTITIS [None]
